FAERS Safety Report 8281048 (Version 3)
Quarter: 2013Q1

REPORT INFORMATION
  Report Type: Report from Study
  Country: AT (occurrence: AT)
  Receive Date: 20111208
  Receipt Date: 20130221
  Transmission Date: 20140127
  Serious: Yes (Death, Hospitalization)
  Sender: FDA-Public Use
  Company Number: AT-ROCHE-1013571

PATIENT
  Age: 51 Year
  Sex: Male
  Weight: 100 kg

DRUGS (7)
  1. VEMURAFENIB [Suspect]
     Indication: METASTATIC MALIGNANT MELANOMA
     Dosage: DATE OF LAST DOSE PRIOR TO SAE: 04/NOV/2011, TEMPORARILY INTERRUPTED.
     Route: 048
     Dates: start: 20111018, end: 20111104
  2. DEXAMETHASONE [Suspect]
     Indication: METASTATIC MALIGNANT MELANOMA
     Route: 065
     Dates: start: 20110814, end: 20111111
  3. ESOMEPRAZOLE MAGNESIUM TRIHYDRATE [Concomitant]
     Route: 065
     Dates: start: 20110814, end: 20111111
  4. MIRTAZAPIN [Concomitant]
     Route: 065
     Dates: start: 20110831, end: 20111110
  5. MAGNESIUM CARBONATE [Concomitant]
     Route: 065
     Dates: start: 20110831, end: 20111104
  6. CALCIUM CARBONATE/CHOLECALCIFEROL [Concomitant]
     Route: 065
     Dates: start: 20110831, end: 20111111
  7. ALPRAZOLAM [Concomitant]
     Route: 065
     Dates: start: 20110831, end: 20111111

REACTIONS (1)
  - Pneumonia [Fatal]
